FAERS Safety Report 25361436 (Version 3)
Quarter: 2025Q2

REPORT INFORMATION
  Report Type: Spontaneous
  Country: US (occurrence: US)
  Receive Date: 20250527
  Receipt Date: 20250617
  Transmission Date: 20250717
  Serious: Yes (Other)
  Sender: HIKMA
  Company Number: US-HIKMA PHARMACEUTICALS USA INC.-US-H14001-25-04579

PATIENT
  Age: 36 Year
  Sex: Female

DRUGS (3)
  1. CYANOCOBALAMIN [Suspect]
     Active Substance: CYANOCOBALAMIN
     Indication: Product used for unknown indication
     Route: 065
  2. HUMIRA [Suspect]
     Active Substance: ADALIMUMAB
     Indication: Product used for unknown indication
     Dosage: UNK, WEEKLY
     Route: 065
     Dates: start: 202401
  3. XELJANZ [Suspect]
     Active Substance: TOFACITINIB CITRATE
     Indication: Crohn^s disease
     Dosage: 10 MILLIGRAM, BID
     Route: 048
     Dates: start: 201811

REACTIONS (9)
  - Gestational diabetes [Unknown]
  - Hernia repair [Unknown]
  - Haemorrhage [Unknown]
  - Sleep disorder [Unknown]
  - Withdrawal syndrome [Unknown]
  - Insomnia [Unknown]
  - Abdominal distension [Unknown]
  - Illness [Unknown]
  - Maternal exposure during pregnancy [Recovered/Resolved]
